FAERS Safety Report 10196403 (Version 3)
Quarter: 2014Q2

REPORT INFORMATION
  Report Type: Spontaneous
  Country: CH (occurrence: CH)
  Receive Date: 20140527
  Receipt Date: 20140530
  Transmission Date: 20141212
  Serious: Yes (Death, Hospitalization)
  Sender: FDA-Public Use
  Company Number: CH-JNJFOC-20140217724

PATIENT
  Age: 81 Year
  Sex: Male

DRUGS (4)
  1. REMICADE [Suspect]
     Indication: SYSTEMIC INFLAMMATORY RESPONSE SYNDROME
     Dosage: 8TH INFUSION
     Route: 042
     Dates: start: 20140416, end: 20140416
  2. REMICADE [Suspect]
     Indication: SYSTEMIC INFLAMMATORY RESPONSE SYNDROME
     Route: 042
     Dates: start: 20131218
  3. REMICADE [Suspect]
     Indication: SYSTEMIC INFLAMMATORY RESPONSE SYNDROME
     Route: 042
     Dates: start: 20140216
  4. REMICADE [Suspect]
     Indication: SYSTEMIC INFLAMMATORY RESPONSE SYNDROME
     Route: 042
     Dates: start: 201311

REACTIONS (10)
  - Death [Fatal]
  - Cardiac pacemaker insertion [Unknown]
  - Troponin T increased [Unknown]
  - Syncope [Recovered/Resolved]
  - Dyspnoea [Recovered/Resolved]
  - Urticaria [Recovered/Resolved]
  - Anaphylactic reaction [Recovered/Resolved]
  - Gastrointestinal pain [Recovered/Resolved]
  - Infusion related reaction [Unknown]
  - Off label use [Not Recovered/Not Resolved]
